FAERS Safety Report 13575172 (Version 2)
Quarter: 2017Q2

REPORT INFORMATION
  Report Type: Report from Study
  Country: US (occurrence: US)
  Receive Date: 20170524
  Receipt Date: 20170613
  Transmission Date: 20170830
  Serious: Yes (Other)
  Sender: FDA-Public Use
  Company Number: US-AMGEN-USASL2017075829

PATIENT
  Age: 71 Year
  Sex: Female
  Weight: 86.62 kg

DRUGS (2)
  1. REPATHA [Suspect]
     Active Substance: EVOLOCUMAB
     Indication: HYPERCHOLESTEROLAEMIA
     Dosage: 140 MG, Q2WK
     Route: 058
     Dates: start: 20160601, end: 201702
  2. REPATHA [Suspect]
     Active Substance: EVOLOCUMAB
     Indication: HYPERLIPIDAEMIA

REACTIONS (5)
  - Pneumonia [Unknown]
  - Viral upper respiratory tract infection [Unknown]
  - Drug dose omission [Unknown]
  - Dizziness [Unknown]
  - Blood cholesterol increased [Unknown]
